FAERS Safety Report 10151994 (Version 24)
Quarter: 2015Q1

REPORT INFORMATION
  Report Type: Report from Study
  Country: CA (occurrence: CA)
  Receive Date: 20140505
  Receipt Date: 20150115
  Transmission Date: 20150720
  Serious: Yes (Hospitalization, Other)
  Sender: FDA-Public Use
  Company Number: CA-ROCHE-1340985

PATIENT
  Age: 56 Year
  Sex: Female
  Weight: 67.2 kg

DRUGS (29)
  1. NASONEX [Concomitant]
     Active Substance: MOMETASONE FUROATE
     Route: 065
  2. ELMIRON [Concomitant]
     Active Substance: PENTOSAN POLYSULFATE SODIUM
     Indication: CYSTITIS
     Dosage: BEFORE MEALS
     Route: 048
     Dates: start: 2006
  3. BISOPROLOL [Concomitant]
     Active Substance: BISOPROLOL
     Indication: PALPITATIONS
     Dosage: CUT TABLET IN HALF
     Route: 048
     Dates: start: 2012
  4. AMITRIPTYLINE [Concomitant]
     Active Substance: AMITRIPTYLINE
     Dosage: 1 TABLET IN THE MORNIGHT; 1 TABLET AT NIGHT
     Route: 048
  5. METOCLOP [Concomitant]
     Indication: NAUSEA
     Dosage: TAKE 1 TAB 4 X A DAY 30 MINS BEFORE MEALS+ BEDTIME
     Route: 048
     Dates: start: 20131101
  6. ELAVIL [Concomitant]
     Active Substance: AMITRIPTYLINE HYDROCHLORIDE
  7. VITAMIN B2 [Concomitant]
     Active Substance: RIBOFLAVIN
     Indication: MIGRAINE
     Route: 048
     Dates: start: 20140523
  8. PREGABALIN. [Concomitant]
     Active Substance: PREGABALIN
     Dosage: 1 CAPSULE IN THE AM; 2 CAPSULES AT NIGHT
     Route: 048
     Dates: start: 20140523
  9. AVASTIN [Suspect]
     Active Substance: BEVACIZUMAB
     Indication: OVARIAN CANCER
     Route: 042
     Dates: start: 20131212
  10. PROCHLORPERAZINE. [Concomitant]
     Active Substance: PROCHLORPERAZINE
     Indication: NAUSEA
     Dosage: TAKE 1 TAB EVERY 6 HRS IF NAUSEATED, AS REQUIRED
     Route: 048
     Dates: start: 20130321
  11. CELEBREX [Concomitant]
     Active Substance: CELECOXIB
     Route: 065
  12. AVASTIN [Suspect]
     Active Substance: BEVACIZUMAB
     Route: 042
     Dates: start: 20140515
  13. AVASTIN [Suspect]
     Active Substance: BEVACIZUMAB
     Route: 042
     Dates: start: 20141211
  14. SENNOSIDES. [Concomitant]
     Active Substance: SENNOSIDES
  15. TYLENOL [Concomitant]
     Active Substance: ACETAMINOPHEN
  16. REPLENS [Concomitant]
     Active Substance: CARBOMER 934\GLYCERIN\METHYLPARABEN\PROPYLPARABEN\SODIUM HYDROXIDE
     Dosage: 1 APPLICATION AT BEDTIME 3 OUT OF 7 NIGHTS
     Route: 067
     Dates: start: 20140517
  17. PROLIA [Concomitant]
     Active Substance: DENOSUMAB
     Route: 058
     Dates: start: 20140522
  18. MAGLUCATE [Concomitant]
     Indication: BLOOD MAGNESIUM DECREASED
     Dosage: TAKE WITH FOOD
     Route: 048
     Dates: start: 20140501
  19. ACETAMINOPHEN. [Concomitant]
     Active Substance: ACETAMINOPHEN
     Dosage: TAKE 2 TABLET 3 TIMES PER DAY AS NEEDED
     Route: 048
     Dates: start: 20100825
  20. VITAMIN B1 [Concomitant]
     Active Substance: THIAMINE HYDROCHLORIDE
     Indication: HYPOAESTHESIA
     Route: 048
     Dates: start: 20140509
  21. METAMUCIL [Concomitant]
     Active Substance: PLANTAGO SEED
  22. CELEBREX [Concomitant]
     Active Substance: CELECOXIB
     Indication: INFLAMMATION
     Dosage: TAKE 1 CAPSULE AT BREAKFAST AND 1 AT DINNER
     Route: 048
     Dates: start: 20130904
  23. NEXIUM [Concomitant]
     Active Substance: ESOMEPRAZOLE MAGNESIUM
     Dosage: 1 BEFORE BREAKFAST; 1 BEFORE DINNER
     Route: 048
     Dates: start: 20140602
  24. AMITRIPTYLINE [Concomitant]
     Active Substance: AMITRIPTYLINE
     Dosage: 1 TABLET AT BEDTIME
     Route: 048
  25. ATIVAN [Concomitant]
     Active Substance: LORAZEPAM
     Dosage: TAKE 1 TABLET AT NIGHT AS REQUIRED
     Route: 048
  26. DOCUSATE SODIUM. [Concomitant]
     Active Substance: DOCUSATE SODIUM
  27. VALACYCLOVIR [Concomitant]
     Active Substance: VALACYCLOVIR HYDROCHLORIDE
     Indication: ORAL HERPES
     Dosage: TAKE 4 TAB WITH SYMPTOMS THEN REPEAT 12 HRS LATER
     Route: 048
  28. NITROGLYCERIN SPRAY [Concomitant]
     Active Substance: NITROGLYCERIN
     Dosage: 1 SPRAY UNDER TONGUE AT START OF CHEST PAIN, AS REQUIRED
     Route: 060
  29. LYRICA [Concomitant]
     Active Substance: PREGABALIN

REACTIONS (53)
  - Proctalgia [Unknown]
  - Abdominal pain [Not Recovered/Not Resolved]
  - Red blood cell count decreased [Unknown]
  - Epistaxis [Not Recovered/Not Resolved]
  - Urine protein/creatinine ratio increased [Unknown]
  - Proteinuria [Unknown]
  - Musculoskeletal chest pain [Recovered/Resolved]
  - Constipation [Unknown]
  - Myocardial infarction [Unknown]
  - Metastatic neoplasm [Unknown]
  - Palpitations [Unknown]
  - Back pain [Recovered/Resolved]
  - Malaise [Unknown]
  - Blood potassium increased [Unknown]
  - Abdominal distension [Unknown]
  - Chest pain [Unknown]
  - Mass [Not Recovered/Not Resolved]
  - Gamma-glutamyltransferase increased [Unknown]
  - Aspartate aminotransferase increased [Unknown]
  - Off label use [Unknown]
  - Weight increased [Not Recovered/Not Resolved]
  - Proctalgia [Unknown]
  - Ingrowing nail [Recovered/Resolved]
  - Cardiac disorder [Unknown]
  - Red cell distribution width increased [Not Recovered/Not Resolved]
  - Blood bilirubin decreased [Unknown]
  - Alanine aminotransferase increased [Unknown]
  - Insomnia [Not Recovered/Not Resolved]
  - Carbohydrate antigen 125 increased [Unknown]
  - Blood sodium decreased [Not Recovered/Not Resolved]
  - Abdominal pain lower [Not Recovered/Not Resolved]
  - Angina pectoris [Recovered/Resolved]
  - Eosinophil count decreased [Not Recovered/Not Resolved]
  - Urinary tract infection [Recovered/Resolved]
  - Dyspnoea [Not Recovered/Not Resolved]
  - Haematocrit decreased [Unknown]
  - Blood calcium increased [Unknown]
  - Blood alkaline phosphatase increased [Unknown]
  - Vaginal infection [Not Recovered/Not Resolved]
  - Somnolence [Unknown]
  - Blood magnesium decreased [Unknown]
  - Lymphocyte count decreased [Not Recovered/Not Resolved]
  - Blood chloride decreased [Not Recovered/Not Resolved]
  - Oral herpes [Not Recovered/Not Resolved]
  - Throat tightness [Recovered/Resolved]
  - Pain [Not Recovered/Not Resolved]
  - Vulvovaginal pain [Unknown]
  - Fatigue [Unknown]
  - Vulvovaginal pain [Unknown]
  - Haemoglobin decreased [Not Recovered/Not Resolved]
  - Paronychia [Unknown]
  - Malignant neoplasm progression [Unknown]
  - Drug ineffective [Unknown]

NARRATIVE: CASE EVENT DATE: 20140109
